FAERS Safety Report 4864153-3 (Version None)
Quarter: 2005Q4

REPORT INFORMATION
  Report Type: 
  Country: None (occurrence: None)
  Receive Date: 20051222
  Receipt Date: 20051220
  Transmission Date: 20060501
  Serious: Yes (Hospitalization)
  Sender: FDA-Public Use
  Company Number: FR-GLAXOSMITHKLINE-B0404355A

PATIENT
  Age: 65 Year
  Sex: Male

DRUGS (7)
  1. AUGMENTIN [Suspect]
     Route: 065
     Dates: start: 20051028, end: 20051101
  2. DI ANTALVIC [Suspect]
     Route: 048
  3. LOVENOX [Suspect]
     Dosage: 40MG UNKNOWN
     Route: 058
     Dates: start: 20051024, end: 20051120
  4. VALIUM [Concomitant]
     Dosage: 5MG PER DAY
     Route: 065
  5. SERESTA [Concomitant]
     Dosage: 50MG PER DAY
     Route: 048
  6. LAROXYL [Concomitant]
     Dosage: 25MG PER DAY
     Route: 065
  7. ORGARAN [Concomitant]
     Route: 065
     Dates: start: 20051120

REACTIONS (11)
  - ASTHENIA [None]
  - ERYTHEMA MULTIFORME [None]
  - HYPERTHERMIA [None]
  - LEUKOCYTOSIS [None]
  - LYMPHADENOPATHY [None]
  - NAUSEA [None]
  - PRURITUS [None]
  - RASH MACULO-PAPULAR [None]
  - RASH PUSTULAR [None]
  - SKIN LESION [None]
  - VOMITING [None]
